FAERS Safety Report 5447544-1 (Version None)
Quarter: 2007Q3

REPORT INFORMATION
  Report Type: 
  Country: None (occurrence: None)
  Receive Date: 20070905
  Receipt Date: 20070905
  Transmission Date: 20080115
  Serious: Yes (Other)
  Sender: FDA-Public Use
  Company Number: None

PATIENT
  Sex: Male

DRUGS (8)
  1. REVLIMID [Suspect]
     Indication: MULTIPLE MYELOMA
     Dosage: 15MG DAILY 21D/28D PO
     Route: 048
  2. ZOMETA [Concomitant]
  3. ZOLPIDEM TARTRATE [Concomitant]
  4. ATIVAN [Concomitant]
  5. PROPRANOLOL [Concomitant]
  6. DIGITEK [Concomitant]
  7. VICODIN [Concomitant]
  8. OMEPRAZOLE [Concomitant]

REACTIONS (3)
  - ANAEMIA [None]
  - FATIGUE [None]
  - NEUTROPENIA [None]
